FAERS Safety Report 4687711-8 (Version None)
Quarter: 2005Q2

REPORT INFORMATION
  Report Type: 
  Country: None (occurrence: None)
  Receive Date: 20050610
  Receipt Date: 20050602
  Transmission Date: 20051028
  Serious: Yes (Other)
  Sender: FDA-Public Use
  Company Number: US-KINGPHARMUSA00001-K200500745

PATIENT
  Sex: Female

DRUGS (5)
  1. ALTACE [Suspect]
     Indication: HYPERTENSION
     Dosage: 5 MG, QD
     Route: 048
     Dates: start: 20050501, end: 20050501
  2. ALTACE [Suspect]
     Dosage: 5 MG, QD
     Route: 048
     Dates: start: 20050516, end: 20050521
  3. LASITONE [Concomitant]
  4. CANDESARTAN CILEXETIL [Concomitant]
  5. METFORMIN [Concomitant]

REACTIONS (7)
  - ANGIONEUROTIC OEDEMA [None]
  - BLOOD CREATININE INCREASED [None]
  - HYPERTENSION [None]
  - LARYNGEAL OEDEMA [None]
  - MALAISE [None]
  - OXYGEN SATURATION DECREASED [None]
  - TONGUE OEDEMA [None]
